FAERS Safety Report 8827547 (Version 2)
Quarter: 2015Q1

REPORT INFORMATION
  Report Type: Report from Study
  Country: US (occurrence: US)
  Receive Date: 20121005
  Receipt Date: 20150204
  Transmission Date: 20150721
  Serious: Yes (Death, Hospitalization)
  Sender: FDA-Public Use
  Company Number: US-ROCHE-1093266

PATIENT
  Age: 82 Year
  Sex: Male

DRUGS (32)
  1. RITUXAN [Suspect]
     Active Substance: RITUXIMAB
     Indication: DIFFUSE LARGE B-CELL LYMPHOMA
     Route: 042
     Dates: start: 20001114
  2. CYTOXAN [Concomitant]
     Active Substance: CYCLOPHOSPHAMIDE
     Route: 065
     Dates: start: 200010
  3. VINCRISTINE [Concomitant]
     Active Substance: VINCRISTINE
     Route: 065
     Dates: start: 200010
  4. MYCELEX [Concomitant]
     Active Substance: CLOTRIMAZOLE
     Dosage: PRN
     Route: 065
  5. GENTAMYCIN [Concomitant]
     Active Substance: GENTAMICIN
     Route: 042
     Dates: start: 200012
  6. ADRIAMYCIN [Concomitant]
     Active Substance: DOXORUBICIN HYDROCHLORIDE
     Route: 065
     Dates: start: 200010
  7. TYLENOL [Concomitant]
     Active Substance: ACETAMINOPHEN
     Dosage: AS NEEDED
     Route: 065
  8. LASIX [Concomitant]
     Active Substance: FUROSEMIDE
     Dosage: DAILY
     Route: 065
  9. LEVAQUIN [Concomitant]
     Active Substance: LEVOFLOXACIN
     Route: 065
  10. NEUPOGEN [Suspect]
     Active Substance: FILGRASTIM
     Indication: DIFFUSE LARGE B-CELL LYMPHOMA
     Route: 058
     Dates: start: 2000
  11. LEVOFLOXACIN. [Concomitant]
     Active Substance: LEVOFLOXACIN
     Route: 065
  12. ATIVAN [Concomitant]
     Active Substance: LORAZEPAM
     Dosage: HS PRN
     Route: 065
  13. ALLOPURINOL. [Concomitant]
     Active Substance: ALLOPURINOL
     Route: 065
  14. FLAXSEED [Concomitant]
     Active Substance: FLAX SEED
     Dosage: HALF TEASPOON
     Route: 065
  15. PROTONIX (UNITED STATES) [Concomitant]
     Route: 065
  16. FORTAZ [Concomitant]
     Active Substance: CEFTAZIDIME SODIUM
     Dosage: Q 12
     Route: 065
  17. LASIX [Concomitant]
     Active Substance: FUROSEMIDE
     Route: 065
  18. PRILOSEC [Concomitant]
     Active Substance: OMEPRAZOLE MAGNESIUM
     Route: 065
  19. PREDNISONE. [Concomitant]
     Active Substance: PREDNISONE
     Route: 065
     Dates: start: 200010
  20. MORPHINE [Concomitant]
     Active Substance: MORPHINE
     Dosage: PRN
     Route: 042
  21. VITAMIN A [Concomitant]
     Active Substance: VITAMIN A
     Route: 065
  22. ASPIRIN. [Concomitant]
     Active Substance: ASPIRIN
     Route: 065
  23. ANZEMET [Concomitant]
     Active Substance: DOLASETRON MESYLATE
     Route: 065
  24. COMPAZINE [Concomitant]
     Active Substance: PROCHLORPERAZINE MALEATE
  25. DIGOXIN. [Concomitant]
     Active Substance: DIGOXIN
     Route: 065
  26. NEUPOGEN [Suspect]
     Active Substance: FILGRASTIM
     Route: 058
  27. CEFTAZIDIME. [Concomitant]
     Active Substance: CEFTAZIDIME
     Route: 042
  28. FLOMAX (UNITED STATES) [Concomitant]
     Dosage: DAILY
     Route: 065
  29. ARICEPT [Concomitant]
     Active Substance: DONEPEZIL HYDROCHLORIDE
  30. BENADRYL [Concomitant]
     Active Substance: DIPHENHYDRAMINE HYDROCHLORIDE
  31. ATOVAQUONE. [Concomitant]
     Active Substance: ATOVAQUONE
     Route: 065
  32. HYDROCORTISONE. [Concomitant]
     Active Substance: HYDROCORTISONE
     Route: 042

REACTIONS (35)
  - Death [Fatal]
  - Neck pain [Unknown]
  - Myocardial necrosis marker increased [Unknown]
  - Spinal pain [Unknown]
  - Haematocrit decreased [Unknown]
  - Rectal haemorrhage [Unknown]
  - Dizziness [Recovered/Resolved]
  - Respiratory distress [Unknown]
  - Tricuspid valve incompetence [Unknown]
  - Decreased appetite [Unknown]
  - Atrial fibrillation [Unknown]
  - Pyrexia [Unknown]
  - Bone pain [Unknown]
  - Abdominal distension [Unknown]
  - Left ventricular dysfunction [Unknown]
  - Hypoxia [Unknown]
  - Infection [Unknown]
  - Dyspnoea [Unknown]
  - Angiopathy [Unknown]
  - Abdominal discomfort [Unknown]
  - Faeces discoloured [Unknown]
  - Abdominal pain [Unknown]
  - Blood lactate dehydrogenase increased [Unknown]
  - Pulmonary oedema [Unknown]
  - Aortic stenosis [Unknown]
  - Diarrhoea haemorrhagic [Unknown]
  - Flank pain [Unknown]
  - Vomiting [Unknown]
  - Nausea [Unknown]
  - Melaena [Unknown]
  - Epigastric discomfort [Unknown]
  - Abdominal pain upper [Unknown]
  - Oedema [Unknown]
  - Fatigue [Unknown]
  - Asthenia [Unknown]

NARRATIVE: CASE EVENT DATE: 20001106
